FAERS Safety Report 26080805 (Version 1)
Quarter: 2025Q4

REPORT INFORMATION
  Report Type: Spontaneous
  Country: US (occurrence: US)
  Receive Date: 20251124
  Receipt Date: 20251124
  Transmission Date: 20260118
  Serious: No
  Sender: UPSHER SMITH LABORATORIES
  Company Number: US-UPSHER-SMITH LABORATORIES, LLC-20250300715

PATIENT
  Sex: Female

DRUGS (1)
  1. KLOR-CON [Suspect]
     Active Substance: POTASSIUM CHLORIDE
     Indication: Blood potassium abnormal
     Dosage: 20 MEQ, DAILY
     Route: 065
     Dates: start: 202206

REACTIONS (1)
  - Tooth erosion [Unknown]
